FAERS Safety Report 5675939-X (Version None)
Quarter: 2008Q1

REPORT INFORMATION
  Report Type: 
  Country: None (occurrence: None)
  Receive Date: 20080321
  Receipt Date: 20080312
  Transmission Date: 20080703
  Serious: Yes (Other)
  Sender: FDA-Public Use
  Company Number: A0701547A

PATIENT
  Age: 50 Year
  Sex: Female

DRUGS (2)
  1. ALLI [Suspect]
     Indication: DRUG USE FOR UNKNOWN INDICATION
     Route: 048
  2. UNSPECIFIED MEDICATION [Concomitant]

REACTIONS (5)
  - EXOSTOSIS [None]
  - PLANTAR FASCIITIS [None]
  - PNEUMONIA [None]
  - STAPHYLOCOCCAL INFECTION [None]
  - VIRAL INFECTION [None]
